FAERS Safety Report 5395012-8 (Version None)
Quarter: 2007Q3

REPORT INFORMATION
  Report Type: 
  Country: None (occurrence: None)
  Receive Date: 20070724
  Receipt Date: 20070719
  Transmission Date: 20080115
  Serious: Yes (Hospitalization)
  Sender: FDA-Public Use
  Company Number: GB-SP-2007-02506

PATIENT
  Age: 65 Year
  Sex: Male

DRUGS (1)
  1. IMMUCYST [Suspect]
     Route: 043
     Dates: start: 20050101

REACTIONS (1)
  - BOVINE TUBERCULOSIS [None]
